FAERS Safety Report 24589497 (Version 1)
Quarter: 2024Q4

REPORT INFORMATION
  Report Type: Spontaneous
  Country: IT (occurrence: IT)
  Receive Date: 20241107
  Receipt Date: 20241107
  Transmission Date: 20250114
  Serious: Yes (Hospitalization)
  Sender: BAXTER
  Company Number: None

PATIENT
  Age: 66 Year
  Sex: Female
  Weight: 113 kg

DRUGS (6)
  1. METRONIDAZOLE [Suspect]
     Active Substance: METRONIDAZOLE
     Indication: Retroperitoneal abscess
     Dosage: 750 MG X 4 DAY IV
     Route: 042
     Dates: start: 20241003, end: 20241015
  2. FOSTER [Concomitant]
     Active Substance: BECLOMETHASONE\FORMOTEROL
     Route: 055
  3. ESCITALOPRAM [Concomitant]
     Active Substance: ESCITALOPRAM OXALATE
     Route: 048
  4. APIXABAN [Concomitant]
     Active Substance: APIXABAN
     Dosage: UNK
     Route: 048
  5. LEVOTHYROXINE [Concomitant]
     Active Substance: LEVOTHYROXINE
     Route: 048
  6. LANSOPRAZOLE [Concomitant]
     Active Substance: LANSOPRAZOLE
     Route: 048

REACTIONS (4)
  - Dysarthria [Recovered/Resolved]
  - Ataxia [Recovered/Resolved]
  - Nausea [Recovered/Resolved]
  - Nystagmus [Recovered/Resolved]

NARRATIVE: CASE EVENT DATE: 20241012
